FAERS Safety Report 15246125 (Version 3)
Quarter: 2018Q4

REPORT INFORMATION
  Report Type: Spontaneous
  Country: US (occurrence: US)
  Receive Date: 20180806
  Receipt Date: 20181001
  Transmission Date: 20190204
  Serious: Yes (Hospitalization)
  Sender: FDA-Public Use
  Company Number: US-OTSUKA-2018_027393

PATIENT
  Sex: Male

DRUGS (4)
  1. ABILIFY MAINTENA [Suspect]
     Active Substance: ARIPIPRAZOLE
     Indication: SCHIZOPHRENIA
     Dosage: 300 MG, UNK
     Route: 065
     Dates: start: 201708
  2. ABILIFY [Suspect]
     Active Substance: ARIPIPRAZOLE
     Indication: BIPOLAR DISORDER
     Dosage: 2 MG OR 10 MG,QD
     Route: 048
     Dates: start: 201312, end: 2016
  3. OMEPRAZOLE. [Concomitant]
     Active Substance: OMEPRAZOLE
     Indication: PRODUCT USED FOR UNKNOWN INDICATION
     Dosage: 40 MG, UNK
     Route: 065
  4. VITAMIN D [Concomitant]
     Active Substance: CHOLECALCIFEROL
     Indication: PRODUCT USED FOR UNKNOWN INDICATION
     Dosage: 1000 UNITS
     Route: 065

REACTIONS (10)
  - Condition aggravated [Unknown]
  - Memory impairment [Unknown]
  - Hospitalisation [Unknown]
  - Refusal of treatment by patient [Unknown]
  - Gastrooesophageal reflux disease [Unknown]
  - Treatment noncompliance [Unknown]
  - Therapy cessation [Unknown]
  - Crime [Unknown]
  - Prescribed underdose [Unknown]
  - Delusion [Unknown]
